FAERS Safety Report 15632583 (Version 1)
Quarter: 2018Q4

REPORT INFORMATION
  Report Type: Spontaneous
  Country: US (occurrence: US)
  Receive Date: 20181112
  Receipt Date: 20181112
  Transmission Date: 20190205
  Serious: No
  Sender: FDA-Public Use
  Company Number: None

PATIENT
  Age: 47 Year
  Sex: Female
  Weight: 60.4 kg

DRUGS (1)
  1. VENOFER [Suspect]
     Active Substance: IRON SUCROSE
     Indication: IRON DEFICIENCY ANAEMIA
     Route: 042
     Dates: start: 20181029

REACTIONS (4)
  - Back pain [None]
  - Dizziness [None]
  - Pharyngeal oedema [None]
  - Hypotension [None]

NARRATIVE: CASE EVENT DATE: 20181029
